FAERS Safety Report 20023508 (Version 1)
Quarter: 2021Q4

REPORT INFORMATION
  Report Type: Spontaneous
  Country: GB (occurrence: GB)
  Receive Date: 20211102
  Receipt Date: 20211102
  Transmission Date: 20220303
  Serious: Yes (Hospitalization, Other)
  Sender: FDA-Public Use
  Company Number: None

PATIENT
  Sex: Female

DRUGS (9)
  1. ONDANSETRON [Suspect]
     Active Substance: ONDANSETRON
     Indication: Product used for unknown indication
     Dosage: 4 MG IN 2ML INJECTION WITHIN 2 HOURS OF PIPERACILLIN WITH TAZOBACTAM
     Route: 065
  2. FUROSEMIDE [Suspect]
     Active Substance: FUROSEMIDE
     Indication: Product used for unknown indication
     Dosage: 20 MG IN 2ML INJECTION (40 MG) (FROM 22:27 HRS TO 23:09 HRS)
     Route: 065
     Dates: start: 20210901
  3. FUROSEMIDE [Suspect]
     Active Substance: FUROSEMIDE
     Dosage: 20 MG IN 2ML INJECTION (40MG) (FROM 07:30 HRS TO 07:47 HRS)
     Route: 065
     Dates: start: 20210902
  4. AMLODIPINE [Suspect]
     Active Substance: AMLODIPINE BESYLATE
     Indication: Product used for unknown indication
     Dosage: TABLETS, (FROM 07:30 HRS TO 07:54 HRS)
     Route: 065
     Dates: start: 20210902
  5. DALTEPARIN [Suspect]
     Active Substance: DALTEPARIN
     Indication: Product used for unknown indication
     Dosage: 5000 UNITS IN 0.2ML PRE-FILLED SYRINGE, (FROM 22:21 HRS TO 23:09 HRS)
     Route: 065
     Dates: start: 20210901
  6. GENTAMICIN [Suspect]
     Active Substance: GENTAMICIN
     Indication: Product used for unknown indication
     Dosage: 80 MG IN 2ML INJECTION (200MG) (FROM 08:31 HRS TO 08:39 HRS)
     Route: 065
     Dates: start: 20210902
  7. OMEPRAZOLE [Suspect]
     Active Substance: OMEPRAZOLE
     Indication: Product used for unknown indication
     Dosage: (FROM 07:30 HRS TO 07:54 HRS)
     Route: 065
     Dates: start: 20210902
  8. PIPERACILLIN AND TAZOBACTAM [Suspect]
     Active Substance: PIPERACILLIN SODIUM\TAZOBACTAM SODIUM
     Indication: Product used for unknown indication
     Dosage: 2.25 G INJECTION (4500 MG) (FROM 22:00 HRS TO 23:09 HRS)
     Route: 065
     Dates: start: 20210901
  9. PIPERACILLIN AND TAZOBACTAM [Suspect]
     Active Substance: PIPERACILLIN SODIUM\TAZOBACTAM SODIUM
     Dosage: 2.25 G INJECTION (4500 MG), (FROM 06:00 HRS TO 06:55 HRS)
     Route: 065
     Dates: start: 20210902

REACTIONS (7)
  - Illness [Unknown]
  - Abdominal pain upper [Unknown]
  - Hypotensive crisis [Unknown]
  - Medication error [Unknown]
  - Body temperature increased [Unknown]
  - Circulatory collapse [Unknown]
  - Electrocardiogram abnormal [Unknown]
